FAERS Safety Report 17189496 (Version 2)
Quarter: 2025Q3

REPORT INFORMATION
  Report Type: Spontaneous
  Country: EU (occurrence: EU)
  Receive Date: 20191223
  Receipt Date: 20250709
  Transmission Date: 20251020
  Serious: Yes (Other)
  Sender: AUROBINDO
  Company Number: EU-SA-2019SA332080

PATIENT
  Age: 71 Year
  Sex: Male

DRUGS (5)
  1. METOPROLOL [Suspect]
     Active Substance: METOPROLOL
     Indication: Product used for unknown indication
     Route: 065
  2. ENOXAPARIN SODIUM [Suspect]
     Active Substance: ENOXAPARIN SODIUM
     Indication: Product used for unknown indication
     Route: 065
  3. INSULIN NOS [Concomitant]
     Active Substance: INSULIN NOS
     Indication: Hyperkalaemia
     Route: 042
  4. INSULIN NOS [Concomitant]
     Active Substance: INSULIN NOS
  5. LACTULOSE [Concomitant]
     Active Substance: LACTULOSE
     Indication: Hyperkalaemia
     Dosage: 20 MILLIGRAM, TWO TIMES A DAY
     Route: 065

REACTIONS (5)
  - Renal impairment [Recovered/Resolved]
  - Blood potassium increased [Recovered/Resolved]
  - Hyperkalaemia [Recovered/Resolved]
  - Hypoaldosteronism [Unknown]
  - Polyuria [Unknown]
